FAERS Safety Report 5579790-0 (Version None)
Quarter: 2008Q1

REPORT INFORMATION
  Report Type: 
  Country: None (occurrence: None)
  Receive Date: 20080102
  Receipt Date: 20071221
  Transmission Date: 20080703
  Serious: Yes (Other)
  Sender: FDA-Public Use
  Company Number: CL-PFIZER INC-2007105902

PATIENT
  Age: 62 Year
  Sex: Female

DRUGS (1)
  1. CHANTIX [Suspect]
     Route: 048

REACTIONS (1)
  - BLOOD PRESSURE INCREASED [None]
